FAERS Safety Report 9440555 (Version 1)
Quarter: 2013Q3

REPORT INFORMATION
  Report Type: Spontaneous
  Country: US (occurrence: US)
  Receive Date: 20130805
  Receipt Date: 20130805
  Transmission Date: 20140515
  Serious: Yes (Hospitalization, Other)
  Sender: FDA-Public Use
  Company Number: US-AMGEN-USASP2013053698

PATIENT
  Age: 57 Year
  Sex: Female

DRUGS (2)
  1. ENBREL [Suspect]
     Indication: PSORIATIC ARTHROPATHY
     Dosage: 50 MG, QWK
     Route: 065
     Dates: start: 20120210, end: 201212
  2. ENBREL [Suspect]
     Indication: PSORIASIS

REACTIONS (6)
  - Shock [Recovered/Resolved]
  - Limb discomfort [Not Recovered/Not Resolved]
  - Cellulitis [Recovered/Resolved]
  - Sepsis [Recovered/Resolved]
  - Wound [Not Recovered/Not Resolved]
  - Immune system disorder [Not Recovered/Not Resolved]
